FAERS Safety Report 17145699 (Version 2)
Quarter: 2019Q4

REPORT INFORMATION
  Report Type: Other
  Country: US (occurrence: US)
  Receive Date: 20191212
  Receipt Date: 20191227
  Transmission Date: 20200122
  Serious: Yes (Other)
  Sender: FDA-Public Use
  Company Number: US-INTERCEPT-PM2019002216

PATIENT
  Age: 57 Year
  Sex: Female

DRUGS (4)
  1. URSO [Suspect]
     Active Substance: URSODIOL
     Indication: PRODUCT USED FOR UNKNOWN INDICATION
     Dosage: 300 MG, TID
     Route: 048
     Dates: start: 20180914
  2. AUGMENTIN [Suspect]
     Active Substance: AMOXICILLIN\CLAVULANATE POTASSIUM
     Indication: PRODUCT USED FOR UNKNOWN INDICATION
     Dosage: UNK
     Dates: start: 2019, end: 2019
  3. OCALIVA [Suspect]
     Active Substance: OBETICHOLIC ACID
     Indication: PRIMARY BILIARY CHOLANGITIS
     Dosage: 5 MG, QD
     Route: 048
     Dates: start: 20181103, end: 2019
  4. OCALIVA [Suspect]
     Active Substance: OBETICHOLIC ACID
     Dosage: 10 MG, QD
     Route: 048
     Dates: start: 201907

REACTIONS (12)
  - Bronchitis [Recovered/Resolved]
  - Cough [Unknown]
  - Sinus pain [Recovered/Resolved]
  - Oropharyngeal pain [Recovered/Resolved]
  - Taste disorder [Unknown]
  - Nausea [Unknown]
  - Laryngeal oedema [Recovered/Resolved]
  - Ear pain [Recovered/Resolved]
  - Immune system disorder [Recovering/Resolving]
  - Abdominal discomfort [Recovered/Resolved]
  - Therapy cessation [Recovered/Resolved]
  - Gastrooesophageal reflux disease [Recovered/Resolved]

NARRATIVE: CASE EVENT DATE: 2019
